FAERS Safety Report 7960296-6 (Version None)
Quarter: 2011Q4

REPORT INFORMATION
  Report Type: 
  Country: None (occurrence: None)
  Receive Date: 20111206
  Receipt Date: 20111206
  Transmission Date: 20120403
  Serious: Yes (Hospitalization, Disabling)
  Sender: FDA-Public Use
  Company Number: PHHO2010FR17489

PATIENT
  Sex: Male
  Weight: 48 kg

DRUGS (3)
  1. AFINITOR [Suspect]
     Indication: METASTATIC GASTRIC CANCER
     Dosage: 10 MG, QD
     Route: 048
     Dates: start: 20101104, end: 20101114
  2. PLAVIX [Concomitant]
     Indication: CORONARY ARTERY INSUFFICIENCY
     Dosage: UNK
  3. ACETAMINOPHEN AND TRAMADOL HCL [Concomitant]
     Indication: PAIN

REACTIONS (4)
  - ASTHENIA [None]
  - PALPITATIONS [None]
  - STOMATITIS [None]
  - DYSPNOEA [None]
